FAERS Safety Report 18465287 (Version 1)
Quarter: 2020Q4

REPORT INFORMATION
  Report Type: Spontaneous
  Country: AT (occurrence: AT)
  Receive Date: 20201104
  Receipt Date: 20201104
  Transmission Date: 20210114
  Serious: Yes (Hospitalization)
  Sender: FDA-Public Use
  Company Number: AT-ANIPHARMA-2020-AT-000023

PATIENT
  Sex: Female

DRUGS (5)
  1. TEBOFORTAN [Concomitant]
     Active Substance: GINKGO
     Dosage: UNSPECIFIED DOSE AND FREQUENCY
     Route: 065
  2. ELIQUIS [Concomitant]
     Active Substance: APIXABAN
     Dosage: UNSPECIFIED DOSE TWO TIMES A DAY
     Route: 065
  3. CANDESARTAN CILEXETIL AND HYDROCHLOROTHIAZIDE [Suspect]
     Active Substance: CANDESARTAN CILEXETIL\HYDROCHLOROTHIAZIDE
     Indication: HYPERTENSION
     Dosage: UNSPECIFIED DOSE AND FREQUENCY
     Route: 048
  4. DAFLON [Concomitant]
     Dosage: UNSPECIFIED DOSE AND FREQUENCY
     Route: 065
  5. VITAMIN D3 [Suspect]
     Active Substance: CHOLECALCIFEROL
     Dosage: UNSPECIFIED DOSE AND FREQUENCY
     Route: 065

REACTIONS (4)
  - Pulmonary embolism [Unknown]
  - Blood pressure fluctuation [Unknown]
  - Hospitalisation [Unknown]
  - Drug ineffective [Unknown]
